FAERS Safety Report 4780774-0 (Version None)
Quarter: 2005Q3

REPORT INFORMATION
  Report Type: 
  Country: None (occurrence: None)
  Receive Date: 20050927
  Receipt Date: 20050118
  Transmission Date: 20060218
  Serious: Yes (Other)
  Sender: FDA-Public Use
  Company Number: US-MERCK-0501USA02922

PATIENT
  Age: 48 Year
  Sex: Male
  Weight: 74 kg

DRUGS (10)
  1. VIOXX [Suspect]
     Indication: NECK PAIN
     Route: 048
     Dates: start: 20031001
  2. VIOXX [Suspect]
     Indication: BACK PAIN
     Route: 048
     Dates: start: 20031001
  3. ZANTAC [Concomitant]
     Route: 048
  4. FLEXERIL [Concomitant]
     Route: 048
  5. COLACE [Concomitant]
     Route: 048
  6. HYDROCHLOROTHIAZIDE [Concomitant]
     Route: 048
  7. LISINOPRIL [Concomitant]
     Route: 048
  8. ASPIRIN [Concomitant]
     Route: 048
  9. ESOMEPRAZOLE [Concomitant]
     Route: 048
  10. NAPROXEN [Concomitant]
     Route: 048

REACTIONS (17)
  - CARDIAC DISORDER [None]
  - CHEST PAIN [None]
  - CHOLELITHIASIS [None]
  - COUGH [None]
  - DIZZINESS [None]
  - DRUG INEFFECTIVE [None]
  - DYSPNOEA [None]
  - FEELING ABNORMAL [None]
  - HAEMATEMESIS [None]
  - HAEMORRHOIDS [None]
  - INJURY [None]
  - INTESTINAL POLYP [None]
  - LIVER DISORDER [None]
  - LOWER GASTROINTESTINAL HAEMORRHAGE [None]
  - PROCEDURAL PAIN [None]
  - SOMNOLENCE [None]
  - VASCULAR CALCIFICATION [None]
